FAERS Safety Report 6698750-X (Version None)
Quarter: 2010Q2

REPORT INFORMATION
  Report Type: 
  Country: None (occurrence: None)
  Receive Date: 20100426
  Receipt Date: 20100426
  Transmission Date: 20101027
  Serious: Yes (Hospitalization)
  Sender: FDA-Public Use
  Company Number: None

PATIENT
  Age: 57 Year
  Sex: Female
  Weight: 58.514 kg

DRUGS (2)
  1. ROLAIDS TAB [Suspect]
     Indication: BLOOD CALCIUM ABNORMAL
     Dosage: 2 TO 4 DAILY PO
     Route: 048
     Dates: start: 20100207, end: 20100323
  2. ROLAIDS TAB [Suspect]
     Indication: GASTROOESOPHAGEAL REFLUX DISEASE
     Dosage: 2 TO 4 DAILY PO
     Route: 048
     Dates: start: 20100207, end: 20100323

REACTIONS (12)
  - ABDOMINAL PAIN LOWER [None]
  - ABDOMINAL PAIN UPPER [None]
  - CONSTIPATION [None]
  - DECREASED APPETITE [None]
  - DIARRHOEA [None]
  - DRUG TOXICITY [None]
  - FATIGUE [None]
  - GASTROOESOPHAGEAL REFLUX DISEASE [None]
  - MALAISE [None]
  - NAUSEA [None]
  - POLYDIPSIA [None]
  - PRODUCT CONTAMINATION CHEMICAL [None]
